FAERS Safety Report 13056236 (Version 2)
Quarter: 2016Q4

REPORT INFORMATION
  Report Type: Spontaneous
  Country: US (occurrence: US)
  Receive Date: 20161222
  Receipt Date: 20161228
  Transmission Date: 20170207
  Serious: Yes (Hospitalization)
  Sender: FDA-Public Use
  Company Number: US-UNITED THERAPEUTICS-UNT-2016-019351

PATIENT
  Sex: Female

DRUGS (2)
  1. REMODULIN [Suspect]
     Active Substance: TREPROSTINIL
     Indication: PULMONARY ARTERIAL HYPERTENSION
     Dosage: 0.0385 ?G/KG, CONTINUING
     Route: 041
     Dates: start: 20160222
  2. REMODULIN [Suspect]
     Active Substance: TREPROSTINIL
     Dosage: 0.0385 NG/KG, Q48H
     Route: 041

REACTIONS (4)
  - Kidney ablation [Unknown]
  - Dyspnoea [Unknown]
  - Pyrexia [Unknown]
  - Neoplasm malignant [Unknown]

NARRATIVE: CASE EVENT DATE: 201612
